FAERS Safety Report 13925673 (Version 1)
Quarter: 2017Q3

REPORT INFORMATION
  Report Type: Spontaneous
  Country: US (occurrence: US)
  Receive Date: 20170831
  Receipt Date: 20170831
  Transmission Date: 20171127
  Serious: Yes (Hospitalization)
  Sender: FDA-Public Use
  Company Number: US-VISTAPHARM, INC.-VER201708-000396

PATIENT
  Age: 49 Year
  Sex: Female

DRUGS (5)
  1. IPRATROPIUM BROMIDE. [Concomitant]
     Active Substance: IPRATROPIUM BROMIDE
     Indication: HYPOXIA
  2. METHYLPREDNISOLONE. [Concomitant]
     Active Substance: METHYLPREDNISOLONE
  3. ALBUTEROL. [Suspect]
     Active Substance: ALBUTEROL
     Indication: HYPOXIA
  4. ALBUTEROL. [Suspect]
     Active Substance: ALBUTEROL
     Indication: BRONCHOSPASM
  5. AMINOPHYLLINE. [Concomitant]
     Active Substance: AMINOPHYLLINE
     Indication: HYPOXIA
     Route: 042

REACTIONS (1)
  - Stress cardiomyopathy [Recovering/Resolving]
